FAERS Safety Report 13238015 (Version 1)
Quarter: 2017Q1

REPORT INFORMATION
  Report Type: Spontaneous
  Country: US (occurrence: US)
  Receive Date: 20170215
  Receipt Date: 20170215
  Transmission Date: 20170428
  Serious: Yes (Disabling, Other)
  Sender: FDA-Public Use
  Company Number: None

PATIENT
  Age: 71 Year
  Sex: Male
  Weight: 96.75 kg

DRUGS (6)
  1. TRULICITY [Concomitant]
     Active Substance: DULAGLUTIDE
  2. BABY ASPIRIN [Concomitant]
     Active Substance: ASPIRIN
  3. AMILORIDE HCTZ [Concomitant]
  4. RASUVO [Suspect]
     Active Substance: METHOTREXATE SODIUM
     Indication: PSORIATIC ARTHROPATHY
     Dosage: ?          QUANTITY:1 INJECTION(S);OTHER FREQUENCY:ONCE A WEEK;?
     Route: 058
     Dates: start: 20160604, end: 20161211
  5. MULTI VITAMIN [Concomitant]
     Active Substance: VITAMINS
  6. DIOVAN [Concomitant]
     Active Substance: VALSARTAN

REACTIONS (7)
  - Rash [None]
  - Blister [None]
  - Pain [None]
  - Herpes zoster [None]
  - Nausea [None]
  - Weight decreased [None]
  - Blister infected [None]

NARRATIVE: CASE EVENT DATE: 20160814
